FAERS Safety Report 22613587 (Version 1)
Quarter: 2023Q2

REPORT INFORMATION
  Report Type: Spontaneous
  Country: CA (occurrence: CA)
  Receive Date: 20230619
  Receipt Date: 20230619
  Transmission Date: 20230722
  Serious: Yes (Life-Threatening, Other)
  Sender: FDA-Public Use
  Company Number: CA-AUROBINDO-AUR-APL-2023-042105

PATIENT
  Age: 60 Year
  Sex: Female
  Weight: 63.502 kg

DRUGS (1)
  1. PERINDOPRIL [Suspect]
     Active Substance: PERINDOPRIL
     Indication: Hypertension
     Dosage: 4 MILLIGRAM, ONCE A DAY
     Route: 048

REACTIONS (10)
  - Angioedema [Recovered/Resolved]
  - Dizziness [Recovered/Resolved]
  - Dyspnoea [Recovered/Resolved]
  - Ear swelling [Recovered/Resolved]
  - Erythema [Recovered/Resolved]
  - General physical health deterioration [Recovered/Resolved]
  - Nausea [Recovered/Resolved]
  - Peripheral swelling [Recovered/Resolved]
  - Rash [Recovered/Resolved]
  - Throat tightness [Recovered/Resolved]
